FAERS Safety Report 24082693 (Version 1)
Quarter: 2024Q3

REPORT INFORMATION
  Report Type: Spontaneous
  Country: US (occurrence: US)
  Receive Date: 20240712
  Receipt Date: 20240712
  Transmission Date: 20241016
  Serious: Yes (Other)
  Sender: AUROBINDO
  Company Number: US-AUROBINDO-AUR-APL-2024-033768

PATIENT
  Age: 51 Year
  Sex: Male

DRUGS (1)
  1. TESTOSTERONE [Suspect]
     Active Substance: TESTOSTERONE
     Indication: Product used for unknown indication
     Dosage: EXOGENOUS SC TESTOSTERONE PELLET INJECTION
     Route: 058

REACTIONS (2)
  - Panniculitis [Unknown]
  - Granuloma [Unknown]
